FAERS Safety Report 10162712 (Version 1)
Quarter: 2014Q2

REPORT INFORMATION
  Report Type: Spontaneous
  Country: CH (occurrence: None)
  Receive Date: 20140507
  Receipt Date: 20140507
  Transmission Date: 20141212
  Serious: Yes (Other)
  Sender: FDA-Public Use
  Company Number: 20140257

PATIENT
  Age: 41 Year
  Sex: Female

DRUGS (1)
  1. FERINJECT (FERRIC CARBOXYMALTOSE - VIFOR) [Suspect]
     Indication: IRON DEFICIENCY ANAEMIA
     Dosage: IV DRIP.
     Dates: start: 20140402, end: 20140402

REACTIONS (4)
  - Malaise [None]
  - Chest discomfort [None]
  - Throat tightness [None]
  - Hypotension [None]
